FAERS Safety Report 15498838 (Version 2)
Quarter: 2018Q4

REPORT INFORMATION
  Report Type: Spontaneous
  Country: BG (occurrence: BG)
  Receive Date: 20181015
  Receipt Date: 20181017
  Transmission Date: 20190205
  Serious: Yes (Other)
  Sender: FDA-Public Use
  Company Number: BG-VIIV HEALTHCARE LIMITED-BG2018GSK185858

PATIENT
  Age: 20 Year
  Sex: Male

DRUGS (1)
  1. TIVICAY [Suspect]
     Active Substance: DOLUTEGRAVIR SODIUM
     Indication: HIV INFECTION
     Dosage: UNK
     Route: 048
     Dates: start: 201712, end: 201801

REACTIONS (1)
  - Chemical eye injury [Not Recovered/Not Resolved]

NARRATIVE: CASE EVENT DATE: 201712
